FAERS Safety Report 10029823 (Version 4)
Quarter: 2014Q3

REPORT INFORMATION
  Report Type: Spontaneous
  Country: US (occurrence: None)
  Receive Date: 20140320
  Receipt Date: 20140728
  Transmission Date: 20150326
  Serious: Yes (Other)
  Sender: FDA-Public Use
  Company Number: UTC-045724

PATIENT
  Age: 73 Year
  Sex: Female
  Weight: 107 kg

DRUGS (2)
  1. TYVASO [Suspect]
     Active Substance: TREPROSTINIL
     Indication: PULMONARY ARTERIAL HYPERTENSION
     Dosage: 18 MCG (18 MCG, 4 IN 1 D),INHALATION
     Route: 055
     Dates: start: 20140220, end: 20140308
  2. CITRACAL (CALCIUM CITRATE) [Concomitant]
     Active Substance: CALCIUM CITRATE

REACTIONS (8)
  - Dizziness [None]
  - Drooling [None]
  - Dysarthria [None]
  - Glassy eyes [None]
  - Speech disorder [None]
  - Immobile [None]
  - Delusion [None]
  - Tremor [None]

NARRATIVE: CASE EVENT DATE: 20140225
